FAERS Safety Report 23180316 (Version 2)
Quarter: 2023Q4

REPORT INFORMATION
  Report Type: Spontaneous
  Country: CN (occurrence: CN)
  Receive Date: 20231114
  Receipt Date: 20231117
  Transmission Date: 20240110
  Serious: Yes (Hospitalization)
  Sender: FDA-Public Use
  Company Number: CN-002147023-NVSC2023CN235552

PATIENT
  Age: 71 Year
  Sex: Female
  Weight: 51.6 kg

DRUGS (2)
  1. SACUBITRIL\VALSARTAN [Suspect]
     Active Substance: SACUBITRIL\VALSARTAN
     Indication: Hypertension
     Dosage: 50 MG, BID
     Route: 048
     Dates: start: 20230804, end: 20231022
  2. SACUBITRIL\VALSARTAN [Suspect]
     Active Substance: SACUBITRIL\VALSARTAN
     Indication: Cardiac failure

REACTIONS (10)
  - Hypotension [Recovering/Resolving]
  - Dizziness [Recovering/Resolving]
  - Chronic hepatic failure [Unknown]
  - Hyperkalaemia [Recovering/Resolving]
  - Chest discomfort [Unknown]
  - Gait disturbance [Recovering/Resolving]
  - Dyspnoea [Unknown]
  - Posture abnormal [Unknown]
  - Medication overuse headache [Unknown]
  - Headache [Unknown]

NARRATIVE: CASE EVENT DATE: 20231018
